FAERS Safety Report 13404088 (Version 1)
Quarter: 2017Q2

REPORT INFORMATION
  Report Type: Spontaneous
  Country: US (occurrence: US)
  Receive Date: 20170405
  Receipt Date: 20170405
  Transmission Date: 20170830
  Serious: Yes (Hospitalization)
  Sender: FDA-Public Use
  Company Number: None

PATIENT
  Age: 46 Year
  Sex: Male

DRUGS (6)
  1. DOFETILIDE. [Suspect]
     Active Substance: DOFETILIDE
     Indication: CARDIAC FAILURE
     Route: 048
     Dates: start: 20170125
  2. FUROSEMIDE. [Concomitant]
     Active Substance: FUROSEMIDE
  3. CARVEDILOL. [Concomitant]
     Active Substance: CARVEDILOL
  4. METHIMAZOLE. [Concomitant]
     Active Substance: METHIMAZOLE
  5. WARFARIN [Concomitant]
     Active Substance: WARFARIN
  6. ASPIRIN. [Concomitant]
     Active Substance: ASPIRIN

REACTIONS (2)
  - Dyspnoea [None]
  - Dizziness [None]

NARRATIVE: CASE EVENT DATE: 20170404
